FAERS Safety Report 13753889 (Version 2)
Quarter: 2017Q3

REPORT INFORMATION
  Report Type: Spontaneous
  Country: US (occurrence: US)
  Receive Date: 20170714
  Receipt Date: 20170807
  Transmission Date: 20171127
  Serious: Yes (Other)
  Sender: FDA-Public Use
  Company Number: US-HORIZON-KRY-0060-2017

PATIENT
  Sex: Male
  Weight: 128 kg

DRUGS (16)
  1. KRYSTEXXA [Suspect]
     Active Substance: PEGLOTICASE
     Indication: GOUT
     Dosage: 8 MG/ML EVERY 2 WEEKS IV
     Route: 042
  2. ASPIRIN. [Concomitant]
     Active Substance: ASPIRIN
     Dosage: 81 MG QD PO
     Route: 048
     Dates: start: 20170302
  3. SOLU-MEDROL [Concomitant]
     Active Substance: METHYLPREDNISOLONE SODIUM SUCCINATE
     Indication: PREMEDICATION
     Dosage: 60 MG IV
     Route: 042
     Dates: start: 20170705
  4. DOXAZOSIN [Concomitant]
     Active Substance: DOXAZOSIN\DOXAZOSIN MESYLATE
     Dosage: 1 MG QD PO
     Route: 048
     Dates: start: 20170302
  5. SCOPOLAMINE [Concomitant]
     Active Substance: SCOPOLAMINE
     Dosage: 1 MG AS TRANSDERMAL PATCH Q72H
     Route: 062
     Dates: start: 20170302
  6. METHYLPREDNISOLONE. [Concomitant]
     Active Substance: METHYLPREDNISOLONE
     Dosage: 4 MG PO PER PKG DIR
     Route: 048
     Dates: start: 20170705
  7. FINASTERID [Concomitant]
     Active Substance: FINASTERIDE
     Dosage: 5 MG QD PO
     Route: 048
     Dates: start: 20170302
  8. MUPIROCIN 2% [Concomitant]
     Active Substance: MUPIROCIN
     Dosage: 1 APPLICATION BID TOPICAL
     Route: 061
     Dates: start: 20170302
  9. TELMISARTAN. [Concomitant]
     Active Substance: TELMISARTAN
     Dosage: 160 MG QD PO
     Route: 048
     Dates: start: 20170302
  10. PREDNISONE. [Concomitant]
     Active Substance: PREDNISONE
     Dosage: 10 MG (AS 10 MG TABLET) QD PO
     Route: 048
     Dates: start: 20170628
  11. INDOMETHACIN. [Concomitant]
     Active Substance: INDOMETHACIN
     Dosage: 75 MG QD PO PRN
     Route: 048
     Dates: start: 20170302
  12. MULTIVITAMIN [Concomitant]
     Active Substance: VITAMINS
     Dosage: 1 TABLET DAILY PO
     Route: 048
     Dates: start: 20170302
  13. BENADRYL [Concomitant]
     Active Substance: DIPHENHYDRAMINE HYDROCHLORIDE
     Indication: PREMEDICATION
     Dosage: 25 MG ORALLY
     Dates: start: 20170705
  14. TYLENOL [Concomitant]
     Active Substance: ACETAMINOPHEN
     Indication: PREMEDICATION
     Dosage: 650 MG ORALLY
     Route: 048
     Dates: start: 20170705
  15. ALFUZOSIN [Concomitant]
     Active Substance: ALFUZOSIN
     Dosage: 10 MG QD PO
     Route: 048
     Dates: start: 20170302
  16. METOPROLOL SUCCINATE. [Concomitant]
     Active Substance: METOPROLOL SUCCINATE
     Dosage: 100 MG QD PO
     Route: 048
     Dates: start: 20170302

REACTIONS (1)
  - Infusion related reaction [Recovered/Resolved]

NARRATIVE: CASE EVENT DATE: 20170705
